FAERS Safety Report 6461077-5 (Version None)
Quarter: 2009Q4

REPORT INFORMATION
  Report Type: 
  Country: None (occurrence: None)
  Receive Date: 20091130
  Receipt Date: 20091119
  Transmission Date: 20100525
  Serious: Yes (Death)
  Sender: FDA-Public Use
  Company Number: B0606862A

PATIENT
  Sex: Female
  Weight: 87 kg

DRUGS (1)
  1. ZANAMIVIR [Suspect]
     Route: 042
     Dates: start: 20091115, end: 20091117

REACTIONS (2)
  - INTRAVASCULAR HAEMOLYSIS [None]
  - PULMONARY HAEMORRHAGE [None]
